FAERS Safety Report 6214091-9 (Version None)
Quarter: 2009Q2

REPORT INFORMATION
  Report Type: 
  Country: None (occurrence: None)
  Receive Date: 20090604
  Receipt Date: 20090529
  Transmission Date: 20091009
  Serious: Yes (Hospitalization)
  Sender: FDA-Public Use
  Company Number: GB-ROCHE-634994

PATIENT
  Sex: Female
  Weight: 117.5 kg

DRUGS (7)
  1. ORLISTAT [Suspect]
     Indication: OBESITY
     Route: 048
     Dates: start: 20080924
  2. ORLISTAT [Suspect]
     Route: 048
  3. TEMAZEPAM [Concomitant]
     Indication: SOMNOLENCE
     Route: 048
  4. VENLAFAXINE HCL [Concomitant]
     Indication: DEPRESSION
     Dosage: REPORTED AS VENLAFEXINE
     Route: 048
  5. MIRTAZAPINE [Concomitant]
     Indication: DEPRESSION
     Dosage: REPORTED AS MIRTAZIPINE
     Route: 048
  6. OXYCODONE [Concomitant]
     Indication: PAIN
     Dosage: REPORTED AS OXYCODINE SLOW RELEASE 20MG 2X DAILY AND INSTANT RELEASE 5MG 6X DAILY
     Route: 048
  7. DICLOFENAC SODIUM [Concomitant]
     Indication: PAIN
     Route: 048

REACTIONS (3)
  - HERNIA [None]
  - URINARY TRACT INFECTION [None]
  - VOLVULUS [None]
